FAERS Safety Report 23277794 (Version 1)
Quarter: 2023Q4

REPORT INFORMATION
  Report Type: Report from Study
  Country: CN (occurrence: CN)
  Receive Date: 20231208
  Receipt Date: 20231208
  Transmission Date: 20240110
  Serious: Yes (Other)
  Sender: FDA-Public Use
  Company Number: CN-SUN PHARMACEUTICAL INDUSTRIES LTD-2023R1-422701

PATIENT
  Sex: Male

DRUGS (2)
  1. OXCARBAZEPINE [Suspect]
     Active Substance: OXCARBAZEPINE
     Indication: Partial seizures
     Dosage: 9.8 MILLIGRAM/KILOGRAM
     Route: 065
  2. OXCARBAZEPINE [Suspect]
     Active Substance: OXCARBAZEPINE
     Dosage: 33.8 MILLIGRAM/KILOGRAM
     Route: 065

REACTIONS (2)
  - Drug ineffective [Unknown]
  - Developmental delay [Unknown]
